FAERS Safety Report 7802062-8 (Version None)
Quarter: 2011Q4

REPORT INFORMATION
  Report Type: 
  Country: None (occurrence: None)
  Receive Date: 20111007
  Receipt Date: 20110927
  Transmission Date: 20120403
  Serious: Yes (Other)
  Sender: FDA-Public Use
  Company Number: CA-JNJFOC-20110912322

PATIENT
  Sex: Male
  Weight: 28 kg

DRUGS (2)
  1. REMICADE [Suspect]
     Route: 042
     Dates: start: 20110427
  2. REMICADE [Suspect]
     Indication: CROHN'S DISEASE
     Dosage: 8TH INFUSION
     Route: 042
     Dates: start: 20110901

REACTIONS (5)
  - THROAT TIGHTNESS [None]
  - ARTHROPOD BITE [None]
  - NASAL CONGESTION [None]
  - INFUSION RELATED REACTION [None]
  - DYSPNOEA [None]
